FAERS Safety Report 5397489-0 (Version None)
Quarter: 2007Q3

REPORT INFORMATION
  Report Type: 
  Country: None (occurrence: None)
  Receive Date: 20070723
  Receipt Date: 20070723
  Transmission Date: 20080115
  Serious: No
  Sender: FDA-Public Use
  Company Number: None

PATIENT

DRUGS (2)
  1. AMLODIPINE BESYLATE [Suspect]
     Dosage: PO
     Route: 048
  2. LOTREL [Suspect]
     Dosage: PO
     Route: 048

REACTIONS (1)
  - MEDICATION ERROR [None]
